FAERS Safety Report 5810343-2 (Version None)
Quarter: 2008Q3

REPORT INFORMATION
  Report Type: 
  Country: None (occurrence: None)
  Receive Date: 20080715
  Receipt Date: 20080509
  Transmission Date: 20090109
  Serious: No
  Sender: FDA-Public Use
  Company Number: A0727240A

PATIENT

DRUGS (1)
  1. IMITREX [Suspect]
     Dosage: 100MG UNKNOWN
     Route: 048

REACTIONS (1)
  - CHEST PAIN [None]
